FAERS Safety Report 13925704 (Version 2)
Quarter: 2017Q4

REPORT INFORMATION
  Report Type: Spontaneous
  Country: JP (occurrence: JP)
  Receive Date: 20170831
  Receipt Date: 20171009
  Transmission Date: 20180320
  Serious: No
  Sender: FDA-Public Use
  Company Number: JP-ELI_LILLY_AND_COMPANY-JP201706002585

PATIENT
  Age: 82 Year
  Sex: Male
  Weight: 48 kg

DRUGS (7)
  1. CISPLATIN. [Suspect]
     Active Substance: CISPLATIN
     Indication: LUNG ADENOCARCINOMA STAGE IV
     Dosage: 110 MG, OTHER
     Route: 041
     Dates: start: 20170529
  2. FRESMIN S                          /00091801/ [Concomitant]
     Dosage: 1 MG, OTHER
     Route: 042
     Dates: start: 20170516
  3. SENNOSIDE                          /00571901/ [Concomitant]
     Active Substance: SENNOSIDES A AND B
     Indication: CONSTIPATION
     Dosage: 24 MG, DAILY
     Route: 048
     Dates: start: 20170508
  4. RINDARON [Concomitant]
     Indication: METASTASES TO CENTRAL NERVOUS SYSTEM
     Dosage: 1.0 MG, DAILY
     Route: 048
     Dates: start: 20170508, end: 20170616
  5. NEXIUM [Concomitant]
     Active Substance: ESOMEPRAZOLE MAGNESIUM
     Indication: PROPHYLAXIS AGAINST GASTROINTESTINAL ULCER
     Dosage: 20 MG, DAILY
     Route: 048
     Dates: start: 20170508
  6. ALIMTA [Suspect]
     Active Substance: PEMETREXED DISODIUM
     Indication: LUNG ADENOCARCINOMA STAGE IV
     Dosage: 730 MG, OTHER
     Route: 041
     Dates: start: 20170529
  7. PANVITAN                           /05664401/ [Concomitant]
     Dosage: 1 G, DAILY
     Route: 048
     Dates: start: 20170517

REACTIONS (1)
  - Hepatic enzyme increased [Recovering/Resolving]

NARRATIVE: CASE EVENT DATE: 20170529
